FAERS Safety Report 9933147 (Version 1)
Quarter: 2014Q1

REPORT INFORMATION
  Report Type: Spontaneous
  Country: US (occurrence: US)
  Receive Date: 20140228
  Receipt Date: 20140228
  Transmission Date: 20141002
  Serious: No
  Sender: FDA-Public Use
  Company Number: US-GLAXOSMITHKLINE-A1051331A

PATIENT
  Age: 4 Year
  Sex: Female

DRUGS (4)
  1. LAMICTAL [Suspect]
     Indication: EPILEPSY
     Route: 065
  2. KEPPRA [Suspect]
     Indication: EPILEPSY
     Route: 065
  3. TOPAMAX [Suspect]
     Indication: EPILEPSY
     Route: 065
  4. VIMPAT [Suspect]
     Indication: EPILEPSY
     Route: 065

REACTIONS (2)
  - Abnormal behaviour [Unknown]
  - Crying [Unknown]
